FAERS Safety Report 5123032-7 (Version None)
Quarter: 2006Q4

REPORT INFORMATION
  Report Type: 
  Country: None (occurrence: None)
  Receive Date: 20061004
  Receipt Date: 20061004
  Transmission Date: 20070319
  Serious: Yes (Hospitalization)
  Sender: FDA-Public Use
  Company Number: None

PATIENT
  Age: 51 Year
  Sex: Male
  Weight: 65.9 kg

DRUGS (2)
  1. SPIRINOLACTONE  25 MG [Suspect]
     Indication: ASCITES
     Dosage: 100 MG  PO  BID
     Route: 048
     Dates: start: 20051102, end: 20060627
  2. LISINOPRIL [Suspect]
     Indication: HYPERTENSION
     Dosage: 20 MG  PO  DAILY
     Route: 048
     Dates: start: 20040127

REACTIONS (3)
  - FALL [None]
  - HYPERKALAEMIA [None]
  - LOSS OF CONSCIOUSNESS [None]
